FAERS Safety Report 4851367-1 (Version None)
Quarter: 2005Q4

REPORT INFORMATION
  Report Type: 
  Country: None (occurrence: None)
  Receive Date: 20051212
  Receipt Date: 20050511
  Transmission Date: 20060501
  Serious: Yes (Hospitalization)
  Sender: FDA-Public Use
  Company Number: GB-ABBOTT-05P-167-0300300-00

PATIENT
  Sex: Female
  Weight: 76 kg

DRUGS (6)
  1. HUMIRA [Suspect]
     Indication: PSORIATIC ARTHROPATHY
     Route: 058
     Dates: start: 20040223
  2. ACETAMINOPHEN W/ PROPOXYPHENE HCL [Concomitant]
     Indication: DRUG USE FOR UNKNOWN INDICATION
  3. IODINE [Concomitant]
     Indication: DRUG USE FOR UNKNOWN INDICATION
  4. HYPERICUM PERFORATUM [Concomitant]
     Indication: DRUG USE FOR UNKNOWN INDICATION
  5. COD-LIVER OIL [Concomitant]
     Indication: DRUG USE FOR UNKNOWN INDICATION
  6. EVENING PRIMROSE OIL [Concomitant]
     Indication: DRUG USE FOR UNKNOWN INDICATION

REACTIONS (1)
  - PSORIATIC ARTHROPATHY [None]
